FAERS Safety Report 15866964 (Version 2)
Quarter: 2019Q1

REPORT INFORMATION
  Report Type: Spontaneous
  Country: DE (occurrence: DE)
  Receive Date: 20190125
  Receipt Date: 20190212
  Transmission Date: 20190417
  Serious: Yes (Death, Hospitalization, Other)
  Sender: FDA-Public Use
  Company Number: DE-ACCORD-103515

PATIENT
  Age: 16 Year
  Sex: Male
  Weight: 65 kg

DRUGS (2)
  1. CLOZAPINE. [Suspect]
     Active Substance: CLOZAPINE
     Indication: PSYCHOTIC DISORDER
  2. CLOZAPINE. [Suspect]
     Active Substance: CLOZAPINE
     Indication: PSYCHOTIC DISORDER
     Route: 048

REACTIONS (10)
  - Vomiting [Unknown]
  - Hypertension [Fatal]
  - Cardiomyopathy [Fatal]
  - Nausea [Unknown]
  - Withdrawal syndrome [Fatal]
  - Differential white blood cell count abnormal [Unknown]
  - C-reactive protein increased [Unknown]
  - Sinus tachycardia [Fatal]
  - Regurgitation [Fatal]
  - Eosinophilia [Unknown]
